FAERS Safety Report 8549776-2 (Version None)
Quarter: 2012Q3

REPORT INFORMATION
  Report Type: 
  Country: None (occurrence: None)
  Receive Date: 20120730
  Receipt Date: 20120718
  Transmission Date: 20120928
  Serious: Yes (Hospitalization)
  Sender: FDA-Public Use
  Company Number: JP-UCBSA-062222

PATIENT
  Age: 50 Year
  Sex: Male

DRUGS (4)
  1. KEPPRA [Suspect]
     Indication: EPILEPSY
     Route: 048
     Dates: start: 20120703, end: 20120717
  2. VALPROATE SODIUM [Concomitant]
     Dosage: UNKNOWN DOSE
     Route: 048
  3. CLONAZEPAM [Concomitant]
     Dosage: UNKNOWN DOSE
     Route: 048
  4. PHENYTOIN SODIUM CAP [Concomitant]
     Dosage: UNKNOWN DOSE
     Route: 048

REACTIONS (2)
  - TREMOR [None]
  - DIPLOPIA [None]
